FAERS Safety Report 14401405 (Version 1)
Quarter: 2018Q1

REPORT INFORMATION
  Report Type: Spontaneous
  Country: SE (occurrence: SE)
  Receive Date: 20180117
  Receipt Date: 20180117
  Transmission Date: 20180509
  Serious: Yes (Hospitalization)
  Sender: FDA-Public Use
  Company Number: SE-009507513-1801SWE005489

PATIENT
  Age: 69 Year
  Sex: Female

DRUGS (1)
  1. CUBICIN [Suspect]
     Active Substance: DAPTOMYCIN
     Indication: DEVICE RELATED INFECTION
     Dosage: ^7 MG/KG 700 MGX1^
     Route: 042
     Dates: start: 20171205, end: 20180102

REACTIONS (1)
  - Pneumonitis [Not Recovered/Not Resolved]

NARRATIVE: CASE EVENT DATE: 20180101
